FAERS Safety Report 8041175-5 (Version None)
Quarter: 2012Q1

REPORT INFORMATION
  Report Type: 
  Country: None (occurrence: None)
  Receive Date: 20120112
  Receipt Date: 20120103
  Transmission Date: 20120608
  Serious: Yes (Other)
  Sender: FDA-Public Use
  Company Number: DE-BRISTOL-MYERS SQUIBB COMPANY-16328007

PATIENT
  Age: 25 Year
  Sex: Male

DRUGS (1)
  1. BARACLUDE [Suspect]

REACTIONS (1)
  - DEAFNESS [None]
